FAERS Safety Report 24576259 (Version 1)
Quarter: 2024Q4

REPORT INFORMATION
  Report Type: Spontaneous
  Country: BE (occurrence: BE)
  Receive Date: 20241104
  Receipt Date: 20241104
  Transmission Date: 20250114
  Serious: Yes (Hospitalization)
  Sender: ORGANON
  Company Number: None

PATIENT
  Sex: Male
  Weight: 122 kg

DRUGS (7)
  1. ATORVASTATIN CALCIUM\EZETIMIBE [Suspect]
     Active Substance: ATORVASTATIN CALCIUM\EZETIMIBE
     Indication: Hypercholesterolaemia
     Dosage: 1 DOSAGE FORM, QD (FILM-COATED TABLET)
     Route: 048
     Dates: start: 20230812, end: 20241004
  2. ELIQUIS [Concomitant]
     Active Substance: APIXABAN
     Dosage: 2 DOSAGE FORM, QD
     Dates: start: 2019
  3. NOBITEN [NEBIVOLOL] [Concomitant]
     Dosage: 2.5 MILLIGRAM, QD
     Dates: start: 2019
  4. OLMESARTAN [Concomitant]
     Active Substance: OLMESARTAN
     Dosage: 1 DOSAGE FORM, QD
     Dates: start: 2019
  5. APOCARD RETARD [Concomitant]
     Dosage: 1 DOSAGE FORM, QD
     Dates: start: 2019
  6. ACETAMINOPHEN [Concomitant]
     Active Substance: ACETAMINOPHEN
     Dosage: 1 DOSAGE FORM, AS NECESSARY
  7. VITAMIN D NOS [Concomitant]
     Active Substance: CHOLECALCIFEROL\ERGOCALCIFEROL
     Dosage: UNK

REACTIONS (3)
  - Atrial fibrillation [Recovered/Resolved]
  - Arrhythmia [Recovered/Resolved]
  - Constipation [Recovered/Resolved]

NARRATIVE: CASE EVENT DATE: 20230905
